FAERS Safety Report 8093209-X (Version None)
Quarter: 2012Q1

REPORT INFORMATION
  Report Type: 
  Country: None (occurrence: None)
  Receive Date: 20120128
  Receipt Date: 20110928
  Transmission Date: 20120608
  Serious: No
  Sender: FDA-Public Use
  Company Number: US-ABBOTT-11P-163-0721140-00

PATIENT
  Age: 57 Year
  Sex: Male

DRUGS (8)
  1. VERAPAMIL [Concomitant]
     Indication: HYPERTENSION
     Dosage: 240MG DAILY
     Route: 048
  2. HUMIRA [Suspect]
     Indication: PSORIASIS
     Dosage: EVERY OTHER WEEK
     Dates: start: 20100801, end: 20110801
  3. LOSARTAN POTASSIUM [Concomitant]
     Indication: HYPERTENSION
     Dosage: 10MG DAILY
     Route: 048
  4. RANITIDINE [Concomitant]
     Indication: DYSPEPSIA
     Dosage: DAILY
     Route: 048
  5. PROAIR HFA [Concomitant]
     Indication: ASTHMA
     Dosage: AS DIRECTED
     Route: 055
  6. FLONASE [Concomitant]
     Indication: HYPERSENSITIVITY
     Dosage: PRN
     Route: 045
  7. PROVENTOLIN [Concomitant]
     Indication: ASTHMA
     Dosage: 2 PUFFS EVERY FOUR HOURS AS NEEDED
     Route: 055
  8. HUMIRA [Suspect]

REACTIONS (7)
  - NASOPHARYNGITIS [None]
  - PSORIASIS [None]
  - RASH [None]
  - DRUG DOSE OMISSION [None]
  - WOUND [None]
  - SKIN EXFOLIATION [None]
  - INJURY [None]
